FAERS Safety Report 5044320-9 (Version None)
Quarter: 2006Q3

REPORT INFORMATION
  Report Type: 
  Country: None (occurrence: None)
  Receive Date: 20060706
  Receipt Date: 20060705
  Transmission Date: 20061208
  Serious: Yes (Death, Other)
  Sender: FDA-Public Use
  Company Number: JP-SANOFI-SYNTHELABO-F01200601581

PATIENT
  Sex: Female
  Weight: 50 kg

DRUGS (3)
  1. CALCIUM LEVOFOLINATE [Suspect]
     Route: 042
     Dates: start: 20051012, end: 20051013
  2. FLUOROURACIL [Suspect]
     Dosage: 500 MG/BODY=349.7 MG/M2 IN BOLUS THEN 750 MG/BODY=524.5 MG/M2 AS INFUSION, D1+2
     Route: 042
     Dates: start: 20051012, end: 20051013
  3. OXALIPLATIN [Suspect]
     Indication: COLON CANCER
     Route: 042
     Dates: start: 20051012, end: 20051012

REACTIONS (9)
  - DIARRHOEA [None]
  - GENERAL PHYSICAL HEALTH DETERIORATION [None]
  - HAEMOGLOBIN DECREASED [None]
  - LEUKOPENIA [None]
  - NAUSEA [None]
  - NEUTROPENIA [None]
  - STOMATITIS [None]
  - THROMBOCYTOPENIA [None]
  - VOMITING [None]
